FAERS Safety Report 8230678-6 (Version None)
Quarter: 2012Q1

REPORT INFORMATION
  Report Type: 
  Country: None (occurrence: None)
  Receive Date: 20120323
  Receipt Date: 20120315
  Transmission Date: 20120608
  Serious: Yes (Other)
  Sender: FDA-Public Use
  Company Number: JP-ASTELLAS-2012US002992

PATIENT
  Sex: Male

DRUGS (10)
  1. PERSANTIN [Concomitant]
     Indication: DIABETES MELLITUS
     Dosage: 25 MG, TID
     Route: 048
     Dates: start: 20120216
  2. ALLOPURINOL [Concomitant]
     Indication: DIABETES MELLITUS
     Dosage: 100 MG, BID
     Route: 048
     Dates: start: 20120216
  3. LOXONIN [Concomitant]
     Indication: MUSCULOSKELETAL PAIN
     Dosage: 120 MG, PRN
     Route: 048
     Dates: start: 20090101
  4. PREDNISOLONE [Concomitant]
     Indication: MUSCULOSKELETAL PAIN
     Dosage: 3 MG, BID
     Route: 048
     Dates: start: 20090101
  5. SELBEX [Concomitant]
     Indication: MUSCULOSKELETAL PAIN
     Dosage: 50 MG, BID
     Route: 048
     Dates: start: 20090101
  6. ADENOSCAN [Suspect]
     Indication: ANGINA PECTORIS
     Dosage: 60 MG, UID/QD
     Route: 042
     Dates: start: 20120306
  7. BEZATOL [Concomitant]
     Indication: DIABETES MELLITUS
     Dosage: 200 MG, BID
     Route: 048
     Dates: start: 20120216
  8. INFREE [Concomitant]
     Indication: MUSCULOSKELETAL PAIN
     Dosage: 100 MG, BID
     Route: 048
     Dates: start: 20090101
  9. PROGRAF [Concomitant]
     Indication: MUSCULOSKELETAL PAIN
     Dosage: 2 MG, UID/QD
     Route: 048
     Dates: start: 20090101
  10. RIMATIL [Concomitant]
     Indication: MUSCULOSKELETAL PAIN
     Dosage: 50 MG, BID
     Route: 048
     Dates: start: 20090101

REACTIONS (1)
  - ANAPHYLACTOID REACTION [None]
